FAERS Safety Report 24922343 (Version 2)
Quarter: 2025Q1

REPORT INFORMATION
  Report Type: Report from Study
  Country: US (occurrence: US)
  Receive Date: 20250204
  Receipt Date: 20250214
  Transmission Date: 20250408
  Serious: Yes (Hospitalization, Other)
  Sender: BRISTOL-MYERS SQUIBB COMPANY
  Company Number: US-BRISTOL-MYERS SQUIBB COMPANY-2025-016079

PATIENT
  Age: 76 Year
  Sex: Male
  Weight: 68.04 kg

DRUGS (2)
  1. ELIQUIS [Suspect]
     Active Substance: APIXABAN
     Indication: Atrial fibrillation
     Route: 048
     Dates: start: 202401, end: 20240308
  2. ELIQUIS [Suspect]
     Active Substance: APIXABAN
     Indication: Thrombosis
     Dates: start: 2024

REACTIONS (5)
  - Spinal disorder [Unknown]
  - Thrombosis [Unknown]
  - Weight decreased [Unknown]
  - Gait disturbance [Unknown]
  - Hypoaesthesia [Unknown]

NARRATIVE: CASE EVENT DATE: 20240101
